FAERS Safety Report 17450265 (Version 2)
Quarter: 2020Q1

REPORT INFORMATION
  Report Type: Report from Study
  Country: ES (occurrence: ES)
  Receive Date: 20200224
  Receipt Date: 20200228
  Transmission Date: 20200409
  Serious: Yes (Other)
  Sender: FDA-Public Use
  Company Number: ES-ACCORD-173639

PATIENT
  Age: 89 Year
  Sex: Male

DRUGS (9)
  1. ALDACTONE [Suspect]
     Active Substance: SPIRONOLACTONE
     Indication: CARDIAC FAILURE
     Dosage: STRENGTH: 25 MG
     Route: 048
     Dates: start: 20190215, end: 20190509
  2. OMEPRAZOLE. [Concomitant]
     Active Substance: OMEPRAZOLE
  3. METFORMIN/METFORMIN CHLOROPHENOXYACETATE/METFORMIN EMBONATE/METFORMIN HYDROCHLORIDE [Concomitant]
     Active Substance: METFORMIN HYDROCHLORIDE
     Dosage: STRENGTH: 850 MG
  4. FUROSEMIDE. [Suspect]
     Active Substance: FUROSEMIDE
     Indication: CARDIAC FAILURE
     Dosage: STRENGTH: 40 MG
     Route: 048
     Dates: start: 20180213, end: 20190509
  5. CAPENON [Suspect]
     Active Substance: AMLODIPINE BESYLATE\OLMESARTAN MEDOXOMIL
     Indication: CARDIAC FAILURE
     Dosage: STRENGTH: 20 MG/ 5 MG
     Route: 048
     Dates: start: 20131007, end: 20190509
  6. VESOMNI [Concomitant]
     Active Substance: SOLIFENACIN\TAMSULOSIN
     Dosage: STRENGTH: 6 MG/0.4 MG
  7. EMCONCOR [Concomitant]
     Active Substance: BISOPROLOL FUMARATE
     Dosage: STRENGTH: 2.5 MG
  8. ALIPZA [Concomitant]
     Active Substance: PITAVASTATIN
     Dosage: STRENGTH: 2 MG
  9. ADIRO [Concomitant]
     Active Substance: ASPIRIN
     Dosage: STRENGTH: 100 MG

REACTIONS (3)
  - Hyperkalaemia [Recovering/Resolving]
  - Renal failure [Recovering/Resolving]
  - Hyponatraemia [Recovering/Resolving]

NARRATIVE: CASE EVENT DATE: 2019
